FAERS Safety Report 7483266-3 (Version None)
Quarter: 2011Q2

REPORT INFORMATION
  Report Type: 
  Country: None (occurrence: None)
  Receive Date: 20110509
  Receipt Date: 20110427
  Transmission Date: 20111010
  Serious: No
  Sender: FDA-Public Use
  Company Number: 2011-00244

PATIENT
  Age: 27 Year
  Sex: Female

DRUGS (2)
  1. OXYMETAZOLINE HCL [Suspect]
     Dosage: 1 SPRAY, 3XWK, 2 WKS
     Route: 045
     Dates: start: 20100501, end: 20100501
  2. VITAMIN E [Concomitant]

REACTIONS (5)
  - SNEEZING [None]
  - RHINALGIA [None]
  - HYPOGEUSIA [None]
  - ANOSMIA [None]
  - RHINORRHOEA [None]
